FAERS Safety Report 15233692 (Version 1)
Quarter: 2018Q3

REPORT INFORMATION
  Report Type: Report from Study
  Country: US (occurrence: US)
  Receive Date: 20180802
  Receipt Date: 20180802
  Transmission Date: 20181010
  Serious: Yes (Hospitalization)
  Sender: FDA-Public Use
  Company Number: US-ACTELION-A-NJ2016-135529

PATIENT
  Age: 35 Year
  Sex: Female
  Weight: 54.42 kg

DRUGS (7)
  1. SILDENAFIL CITRATE. [Concomitant]
     Active Substance: SILDENAFIL CITRATE
  2. BUMETANIDE. [Concomitant]
     Active Substance: BUMETANIDE
  3. RIOCIGUAT. [Concomitant]
     Active Substance: RIOCIGUAT
  4. OPSUMIT [Suspect]
     Active Substance: MACITENTAN
     Indication: PULMONARY ARTERIAL HYPERTENSION
     Dosage: 10 MG, QD
     Route: 048
     Dates: start: 20160422
  5. WARFARIN [Concomitant]
     Active Substance: WARFARIN
  6. TYVASO [Concomitant]
     Active Substance: TREPROSTINIL
  7. REMODULIN [Suspect]
     Active Substance: TREPROSTINIL
     Indication: PRODUCT USED FOR UNKNOWN INDICATION
     Dosage: UNK
     Route: 065

REACTIONS (14)
  - Gastrointestinal disorder [Unknown]
  - Fluid retention [Unknown]
  - Disease progression [Unknown]
  - Diarrhoea [Unknown]
  - Muscle spasms [Unknown]
  - Cough [Unknown]
  - Cholecystitis [Recovered/Resolved]
  - Abdominal pain upper [Recovered/Resolved]
  - Abdominal discomfort [Unknown]
  - Dyspnoea [Unknown]
  - Pain in extremity [Unknown]
  - Pulmonary hypertension [Unknown]
  - Infusion site pain [Recovering/Resolving]
  - Malaise [Unknown]

NARRATIVE: CASE EVENT DATE: 20180102
